FAERS Safety Report 24591239 (Version 3)
Quarter: 2025Q1

REPORT INFORMATION
  Report Type: Report from Study
  Country: US (occurrence: US)
  Receive Date: 20241108
  Receipt Date: 20250225
  Transmission Date: 20250408
  Serious: Yes (Hospitalization, Other)
  Sender: ACADIA PHARMACEUTICALS
  Company Number: US-ACADIA PHARMACEUTICALS INC.-ACA-2024-PIM-006990

PATIENT
  Age: 77 Year
  Sex: Female

DRUGS (23)
  1. NUPLAZID [Suspect]
     Active Substance: PIMAVANSERIN TARTRATE
     Indication: Parkinson^s disease
     Dosage: 34 MILLIGRAM, QD
     Route: 048
     Dates: start: 202401
  2. NUPLAZID [Suspect]
     Active Substance: PIMAVANSERIN TARTRATE
     Indication: Parkinson^s disease psychosis
     Dosage: 34 MILLIGRAM, QD
     Route: 048
     Dates: start: 20240216, end: 20241018
  3. NUPLAZID [Suspect]
     Active Substance: PIMAVANSERIN TARTRATE
     Dosage: 34 MILLIGRAM, QD
     Route: 048
  4. ACETAMINOPHEN [Concomitant]
     Active Substance: ACETAMINOPHEN
  5. CARBIDOPA\LEVODOPA [Concomitant]
     Active Substance: CARBIDOPA\LEVODOPA
  6. DILTIAZEM [Concomitant]
     Active Substance: DILTIAZEM
  7. FUROSEMIDE [Concomitant]
     Active Substance: FUROSEMIDE
  8. GLIMEPIRIDE [Concomitant]
     Active Substance: GLIMEPIRIDE
  9. LEVOTHYROXINE [Concomitant]
     Active Substance: LEVOTHYROXINE
  10. NEUROX [PREGABALIN] [Concomitant]
  11. ASPIRIN [Concomitant]
     Active Substance: ASPIRIN
  12. ASPIRIN [Concomitant]
     Active Substance: ASPIRIN
  13. CALCIUM [Concomitant]
     Active Substance: CALCIUM
  14. CRANBERRY [Concomitant]
     Active Substance: CRANBERRY
  15. DONEPEZIL [Concomitant]
     Active Substance: DONEPEZIL
  16. FAMOTIDINE [Concomitant]
     Active Substance: FAMOTIDINE
  17. ISOSORBIDE MONONITRATE [Concomitant]
     Active Substance: ISOSORBIDE MONONITRATE
  18. NITROGLYCERIN [Concomitant]
     Active Substance: NITROGLYCERIN
  19. POTASSIUM CHLORIDE [Concomitant]
     Active Substance: POTASSIUM CHLORIDE
  20. ROSUVASTATIN [Concomitant]
     Active Substance: ROSUVASTATIN
  21. SPIRONOLACTONE [Concomitant]
     Active Substance: SPIRONOLACTONE
  22. VITAMIN B COMPLEX [Concomitant]
     Active Substance: CYANOCOBALAMIN\DEXPANTHENOL\NIACINAMIDE\PYRIDOXINE HYDROCHLORIDE\RIBOFLAVIN 5^-PHOSPHATE SODIUM\THIA
  23. VITAMIN C [Concomitant]
     Active Substance: ASCORBIC ACID

REACTIONS (5)
  - Spinal fracture [Recovered/Resolved]
  - Soft tissue sarcoma [Recovered/Resolved]
  - Fall [Recovered/Resolved]
  - Adverse drug reaction [Recovering/Resolving]
  - Product dose omission issue [Unknown]

NARRATIVE: CASE EVENT DATE: 20241017
